FAERS Safety Report 19453565 (Version 3)
Quarter: 2021Q4

REPORT INFORMATION
  Report Type: Spontaneous
  Country: CN (occurrence: CN)
  Receive Date: 20210623
  Receipt Date: 20211009
  Transmission Date: 20220304
  Serious: Yes (Life-Threatening, Hospitalization, Other)
  Sender: FDA-Public Use
  Company Number: None

PATIENT
  Age: 68 Year
  Sex: Male
  Weight: 80 kg

DRUGS (8)
  1. ESCITALOPRAM OXALATE [Suspect]
     Active Substance: ESCITALOPRAM OXALATE
     Indication: Depression
     Dosage: 10 MILLIGRAM, QD, (TABLET)
     Route: 065
     Dates: end: 20191130
  2. LORAZEPAM [Suspect]
     Active Substance: LORAZEPAM
     Indication: Depression
     Dosage: 1 MILLIGRAM, QD, TABLET
     Route: 065
     Dates: end: 20191130
  3. OLANZAPINE [Suspect]
     Active Substance: OLANZAPINE
     Indication: Depression
     Dosage: 5 MILLIGRAM, QD, TABLET
     Route: 048
     Dates: end: 20191130
  4. OLANZAPINE [Suspect]
     Active Substance: OLANZAPINE
     Dosage: UNK
     Route: 048
  5. ZOPICLONE [Suspect]
     Active Substance: ZOPICLONE
     Indication: Depression
     Dosage: 3.75 MILLIGRAM, QD
     Route: 048
     Dates: end: 20191130
  6. ZOPICLONE [Suspect]
     Active Substance: ZOPICLONE
     Dosage: UNK
     Route: 048
  7. FLUVOXAMINE MALEATE [Suspect]
     Active Substance: FLUVOXAMINE MALEATE
     Indication: Depression
     Dosage: 50 MILLIGRAM, QD
     Route: 065
     Dates: end: 20191130
  8. BUSPIRONE HYDROCHLORIDE [Suspect]
     Active Substance: BUSPIRONE HYDROCHLORIDE
     Indication: Depression
     Dosage: 5 MILLIGRAM
     Route: 065
     Dates: end: 20191130

REACTIONS (5)
  - Cyanosis central [Recovered/Resolved]
  - Myocardial ischaemia [Recovered/Resolved]
  - Syncope [Recovered/Resolved]
  - Cardiac failure chronic [Recovered/Resolved]
  - Microvascular coronary artery disease [Recovered/Resolved]

NARRATIVE: CASE EVENT DATE: 20191130
